FAERS Safety Report 10372228 (Version 1)
Quarter: 2014Q3

REPORT INFORMATION
  Report Type: Spontaneous
  Country: US (occurrence: US)
  Receive Date: 20140808
  Receipt Date: 20140808
  Transmission Date: 20150326
  Serious: No
  Sender: FDA-Public Use
  Company Number: US-BRISTOL-MYERS SQUIBB COMPANY-20734281

PATIENT
  Age: 34 Year
  Sex: Female
  Weight: 113.83 kg

DRUGS (1)
  1. SPRYCEL [Suspect]
     Active Substance: DASATINIB
     Indication: CHRONIC MYELOID LEUKAEMIA

REACTIONS (4)
  - Joint swelling [Unknown]
  - Weight increased [Unknown]
  - Miliaria [Unknown]
  - Fluid retention [Unknown]
